FAERS Safety Report 9717433 (Version 2)
Quarter: 2015Q3

REPORT INFORMATION
  Report Type: Spontaneous
  Country: US (occurrence: US)
  Receive Date: 20131127
  Receipt Date: 20150803
  Transmission Date: 20151125
  Serious: No
  Sender: FDA-Public Use
  Company Number: US-GILEAD-2008-0019672

PATIENT
  Age: 39 Year
  Sex: Female

DRUGS (6)
  1. VENTAVIS [Concomitant]
     Active Substance: ILOPROST
  2. VIAGRA [Concomitant]
     Active Substance: SILDENAFIL CITRATE
  3. OMEPRAZOLE. [Concomitant]
     Active Substance: OMEPRAZOLE
  4. LETAIRIS [Suspect]
     Active Substance: AMBRISENTAN
     Indication: PULMONARY ARTERIAL HYPERTENSION
     Route: 048
     Dates: start: 20081028
  5. ASPIRIN. [Concomitant]
     Active Substance: ASPIRIN
  6. METOCLOPRAMIDE. [Concomitant]
     Active Substance: METOCLOPRAMIDE

REACTIONS (1)
  - Nasal congestion [Unknown]
